FAERS Safety Report 10460534 (Version 1)
Quarter: 2014Q3

REPORT INFORMATION
  Report Type: Spontaneous
  Country: GB (occurrence: GB)
  Receive Date: 20140918
  Receipt Date: 20140918
  Transmission Date: 20150326
  Serious: Yes (Other)
  Sender: FDA-Public Use
  Company Number: GB-ROCHE-1462093

PATIENT
  Sex: Male

DRUGS (2)
  1. ROACCUTANE [Suspect]
     Active Substance: ISOTRETINOIN
     Indication: PRODUCT USED FOR UNKNOWN INDICATION
     Route: 065
  2. CELLCEPT [Suspect]
     Active Substance: MYCOPHENOLATE MOFETIL\MYCOPHENOLATE MOFETIL HYDROCHLORIDE
     Indication: PRODUCT USED FOR UNKNOWN INDICATION
     Route: 065

REACTIONS (11)
  - Fatigue [Unknown]
  - Arthritis [Unknown]
  - Behcet^s syndrome [Unknown]
  - Bloody discharge [Unknown]
  - Malaise [Unknown]
  - Neutrophil count decreased [Unknown]
  - Erythema nodosum [Unknown]
  - General physical health deterioration [Unknown]
  - Secretion discharge [Unknown]
  - Skin disorder [Unknown]
  - Tonsillar ulcer [Unknown]
